FAERS Safety Report 5874708-5 (Version None)
Quarter: 2008Q3

REPORT INFORMATION
  Report Type: 
  Country: None (occurrence: None)
  Receive Date: 20080903
  Receipt Date: 20080826
  Transmission Date: 20090109
  Serious: Yes (Hospitalization)
  Sender: FDA-Public Use
  Company Number: 2008JP003482

PATIENT
  Age: 81 Year
  Sex: Female
  Weight: 46 kg

DRUGS (9)
  1. PROGRAF [Suspect]
     Indication: RHEUMATOID ARTHRITIS
     Dosage: 1.5 MG, UID/QD, ORAL
     Route: 048
     Dates: start: 20080630, end: 20080709
  2. PREDNISOLONE TAB [Concomitant]
  3. D ALFA (ALFACALCIDOL) CAPSULE [Concomitant]
  4. LANSOPRAZOLE [Concomitant]
  5. MOHRUS (KETOPROFEN) TAPE [Concomitant]
  6. LEVOFLOXACIN [Concomitant]
  7. MUCOSAL TABLET [Concomitant]
  8. ISODINE (PROVIDONE-IODINE) MOUTH WASH [Concomitant]
  9. AZULFIDINE EN FORMULATION [Concomitant]

REACTIONS (5)
  - BODY TEMPERATURE INCREASED [None]
  - DIARRHOEA HAEMORRHAGIC [None]
  - MALAISE [None]
  - MELAENA [None]
  - VOMITING [None]
